FAERS Safety Report 5424266-4 (Version None)
Quarter: 2007Q3

REPORT INFORMATION
  Report Type: 
  Country: None (occurrence: None)
  Receive Date: 20070823
  Receipt Date: 20070816
  Transmission Date: 20080115
  Serious: Yes (Hospitalization, Other)
  Sender: FDA-Public Use
  Company Number: US-PFIZER INC-2007068341

PATIENT
  Sex: Male
  Weight: 84 kg

DRUGS (4)
  1. CADUET [Suspect]
     Indication: BLOOD PRESSURE
     Dosage: TEXT:5/10MG-FREQ:EVERY DAY
     Route: 048
  2. CADUET [Suspect]
     Indication: BLOOD CHOLESTEROL
  3. ATENOLOL [Concomitant]
     Indication: BLOOD PRESSURE
     Route: 048
  4. ASPIRIN [Concomitant]
     Indication: PROPHYLAXIS
     Route: 048

REACTIONS (4)
  - COUGH [None]
  - DIABETES MELLITUS [None]
  - SPINAL FUSION SURGERY [None]
  - SPINAL LAMINECTOMY [None]
